FAERS Safety Report 19843941 (Version 1)
Quarter: 2021Q3

REPORT INFORMATION
  Report Type: Spontaneous
  Country: US (occurrence: US)
  Receive Date: 20210917
  Receipt Date: 20210917
  Transmission Date: 20211014
  Serious: Yes (Other)
  Sender: FDA-Public Use
  Company Number: US-SA-2021SA303169

PATIENT
  Age: 66 Year
  Sex: Male

DRUGS (1)
  1. ZANTAC [Suspect]
     Active Substance: RANITIDINE HYDROCHLORIDE
     Indication: DYSPEPSIA
     Dosage: 25 MG, QD
     Dates: start: 198501, end: 199801

REACTIONS (4)
  - Pancreatic carcinoma stage IV [Unknown]
  - Lung carcinoma cell type unspecified stage IV [Unknown]
  - Mediastinum neoplasm [Unknown]
  - Hepatic cancer stage IV [Unknown]

NARRATIVE: CASE EVENT DATE: 20200723
